FAERS Safety Report 7018216-7 (Version None)
Quarter: 2010Q3

REPORT INFORMATION
  Report Type: 
  Country: None (occurrence: None)
  Receive Date: 20100928
  Receipt Date: 20100921
  Transmission Date: 20110219
  Serious: Yes (Death)
  Sender: FDA-Public Use
  Company Number: JP-ROCHE-729227

PATIENT
  Age: 67 Year
  Sex: Female

DRUGS (4)
  1. CELLCEPT [Suspect]
     Indication: GRAFT VERSUS HOST DISEASE
     Dosage: DOSAGE IS UNCERTAIN
     Route: 048
  2. TACROLIMUS [Concomitant]
     Dosage: DOSAGE IS UNCERTAIN
  3. FLUDARABINE PHOSPHATE [Concomitant]
  4. MELPHALAN HYDROCHLORIDE [Concomitant]

REACTIONS (1)
  - MULTI-ORGAN FAILURE [None]
